FAERS Safety Report 8704922 (Version 3)
Quarter: 2012Q4

REPORT INFORMATION
  Report Type: 
  Country: US (occurrence: US)
  Receive Date: 20120803
  Receipt Date: 20121018
  Transmission Date: 20130627
  Serious: Yes (Hospitalization, Disabling, Other)
  Sender: FDA-Public Use
  Company Number: US-MILLENNIUM PHARMACEUTICALS, INC.-2012-05242

PATIENT
  Age: 17 Year
  Sex: Female
  Weight: 42.7 kg

DRUGS (6)
  1. VELCADE [Suspect]
     Indication: ACUTE MYELOID LEUKAEMIA
     Dosage: 1.3 mg/m2, Cyclic
     Dates: start: 20120609, end: 20120717
  2. ETOPOSIDE [Suspect]
     Indication: ACUTE MYELOID LEUKAEMIA
     Dosage: 100 mg/m2, Cyclic
     Dates: start: 20120609, end: 20120714
  3. DAUNORUBICIN HYDROCHLORIDE [Suspect]
     Indication: ACUTE MYELOID LEUKAEMIA
     Dosage: UNK
  4. CYTARABINE [Suspect]
     Indication: ACUTE MYELOID LEUKAEMIA
     Dosage: 100 mg/m2, Cyclic
     Dates: start: 20120609, end: 20120717
  5. DOXORUBICIN [Suspect]
     Dosage: 50 mg/m2, Cyclic
     Dates: start: 20120609, end: 20120714
  6. VORICONAZOLE [Concomitant]
     Indication: PRODUCT USED FOR UNKNOWN INDICATION

REACTIONS (7)
  - Pain of skin [Not Recovered/Not Resolved]
  - Oral pain [Not Recovered/Not Resolved]
  - Flushing [Not Recovered/Not Resolved]
  - Skin exfoliation [Not Recovered/Not Resolved]
  - Peripheral sensory neuropathy [Not Recovered/Not Resolved]
  - Cholecystitis [Recovered/Resolved]
  - Gastritis [Recovered/Resolved]
